FAERS Safety Report 9189180 (Version 1)
Quarter: 2013Q1

REPORT INFORMATION
  Report Type: Report from Study
  Country: KR (occurrence: KR)
  Receive Date: 20130326
  Receipt Date: 20130326
  Transmission Date: 20140127
  Serious: Yes (Hospitalization)
  Sender: FDA-Public Use
  Company Number: KR-MERCK-1303KOR009231

PATIENT
  Age: 77 Year
  Sex: Male
  Weight: 69 kg

DRUGS (8)
  1. VORINOSTAT [Suspect]
     Indication: GASTRIC CANCER
     Dosage: 400 MG, QD
     Route: 048
     Dates: start: 20130115, end: 20130315
  2. CAPECITABINE [Suspect]
     Indication: GASTRIC CANCER
     Dosage: 2600MG DAILY, BID
     Route: 048
     Dates: start: 20130115, end: 20130315
  3. CISPLATIN [Suspect]
     Indication: GASTRIC CANCER
     Dosage: 80MG DAILY, QD
     Route: 042
     Dates: start: 20130115, end: 20130315
  4. RAMOSETRON [Concomitant]
     Indication: PROPHYLAXIS
     Dosage: 0.3MG DAILY
     Dates: start: 20130115, end: 20130305
  5. DEXAMETHASONE [Concomitant]
     Indication: PROPHYLAXIS
     Dosage: 8MG DAILY
     Dates: start: 20130115, end: 20130308
  6. RANITIDINE [Concomitant]
     Indication: PROPHYLAXIS
     Dosage: 300MG DIALY
     Dates: start: 20130115, end: 20130308
  7. FUROSEMIDE [Concomitant]
     Indication: PROPHYLAXIS
     Dosage: 20MG DAILY
     Dates: start: 20130115, end: 20130315
  8. EMEND [Concomitant]
     Indication: PROPHYLAXIS
     Dosage: 80MG DAILY
     Dates: start: 20130115, end: 20130317

REACTIONS (1)
  - Abdominal pain [Recovered/Resolved]
